FAERS Safety Report 23137968 (Version 1)
Quarter: 2023Q4

REPORT INFORMATION
  Report Type: Spontaneous
  Country: US (occurrence: US)
  Receive Date: 20231102
  Receipt Date: 20231102
  Transmission Date: 20240110
  Serious: Yes (Hospitalization)
  Sender: FDA-Public Use
  Company Number: US-Accord-381061

PATIENT
  Age: 53 Year
  Sex: Male

DRUGS (10)
  1. FLUOROURACIL [Suspect]
     Active Substance: FLUOROURACIL
     Indication: Adenocarcinoma gastric
     Dosage: 2400 MILLIGRAM/SQ. METER?DAY 1, Q14D, INTRAVENOUS USE
     Route: 042
     Dates: start: 20230630
  2. OXALIPLATIN [Suspect]
     Active Substance: OXALIPLATIN
     Indication: Adenocarcinoma gastric
     Dosage: 85 MILLIGRAM/SQ. METER?DAY 1,  INTRAVENOUS USE
     Route: 042
     Dates: start: 20230630
  3. LEUCOVORIN CALCIUM [Suspect]
     Active Substance: LEUCOVORIN CALCIUM
     Indication: Adenocarcinoma gastric
     Dosage: 400 MILLIGRAM/SQ?DAY 1, Q14D, INTRAVENOUS USE
     Route: 042
     Dates: start: 20230630
  4. PANTOPRAZOLE [Concomitant]
     Active Substance: PANTOPRAZOLE
  5. MORPHINE [Concomitant]
     Active Substance: MORPHINE
  6. GABAPENTIN [Concomitant]
     Active Substance: GABAPENTIN
  7. ACETAMINOPHEN\HYDROCODONE BITARTRATE [Concomitant]
     Active Substance: ACETAMINOPHEN\HYDROCODONE BITARTRATE
  8. HYDROMORPHONE [Concomitant]
     Active Substance: HYDROMORPHONE
  9. PROCHLORPERAZINE [Concomitant]
     Active Substance: PROCHLORPERAZINE
  10. MOMETASONE [Concomitant]
     Active Substance: MOMETASONE

REACTIONS (3)
  - Nausea [Recovered/Resolved]
  - Hypophagia [Recovered/Resolved]
  - Pain [Recovered/Resolved]

NARRATIVE: CASE EVENT DATE: 20230707
